FAERS Safety Report 7105642-0 (Version None)
Quarter: 2010Q4

REPORT INFORMATION
  Report Type: 
  Country: None (occurrence: None)
  Receive Date: 20101116
  Receipt Date: 20101102
  Transmission Date: 20110411
  Serious: Yes (Hospitalization, Other)
  Sender: FDA-Public Use
  Company Number: FR-ACTELION-A-CH2010-38714

PATIENT
  Sex: Female
  Weight: 60 kg

DRUGS (8)
  1. TRACLEER [Suspect]
     Indication: PULMONARY ARTERIAL HYPERTENSION
     Dosage: 125 MG, BID
     Route: 048
     Dates: start: 20090914, end: 20100723
  2. TRACLEER [Suspect]
     Dosage: 62.5 MG, BID
     Route: 048
     Dates: start: 20090316, end: 20090913
  3. IMUREL [Concomitant]
  4. LASIX [Concomitant]
  5. ALDACTONE [Concomitant]
  6. DILTIAZEM HCL [Concomitant]
  7. SINTROM [Concomitant]
  8. EFFERALGAN CODEINE [Concomitant]

REACTIONS (6)
  - ANTIBODY TEST POSITIVE [None]
  - BILIARY DILATATION [None]
  - CHOLESTASIS [None]
  - CYTOLYTIC HEPATITIS [None]
  - LIVER FUNCTION TEST ABNORMAL [None]
  - OEDEMATOUS PANCREATITIS [None]
